FAERS Safety Report 9080498 (Version 1)
Quarter: 2013Q1

REPORT INFORMATION
  Report Type: Report from Study
  Country: US (occurrence: US)
  Receive Date: 20130130
  Receipt Date: 20130130
  Transmission Date: 20140127
  Serious: No
  Sender: FDA-Public Use
  Company Number: US-ABBOTT-12P-163-0972455-00

PATIENT
  Age: 54 Year
  Sex: Female

DRUGS (4)
  1. HUMIRA 40 MG/0.8 ML PEN [Suspect]
     Indication: PSORIASIS
     Dates: start: 20120717
  2. SYNTHROID [Concomitant]
     Indication: HYPOTHYROIDISM
     Dosage: DAILY
     Route: 048
  3. ESTROGEN [Concomitant]
     Indication: HORMONE REPLACEMENT THERAPY
     Dosage: DAILY
     Route: 048
  4. ZYRTEC [Concomitant]
     Indication: HYPERSENSITIVITY
     Route: 048

REACTIONS (1)
  - Psoriasis [Not Recovered/Not Resolved]
